FAERS Safety Report 4983015-4 (Version None)
Quarter: 2006Q2

REPORT INFORMATION
  Report Type: 
  Country: None (occurrence: None)
  Receive Date: 20060420
  Receipt Date: 20060407
  Transmission Date: 20061013
  Serious: Yes (Other)
  Sender: FDA-Public Use
  Company Number: 2006049236

PATIENT
  Sex: Male
  Weight: 68.0396 kg

DRUGS (4)
  1. BEXTRA [Suspect]
     Indication: ARTHRITIS
     Dosage: (20 MG), ORAL
     Route: 048
     Dates: end: 20050101
  2. ELAVIL [Concomitant]
  3. ALL OTHER THERAPEUTIC PRODUCTS (ALL OTHER THERAPEUTIC PRODUCTS [Concomitant]
  4. NORCO [Concomitant]

REACTIONS (12)
  - AMNESIA [None]
  - CEREBROVASCULAR ACCIDENT [None]
  - IMPAIRED HEALING [None]
  - MEMORY IMPAIRMENT [None]
  - NERVE COMPRESSION [None]
  - PAIN [None]
  - PARAESTHESIA [None]
  - RASH [None]
  - SCAR [None]
  - SCRATCH [None]
  - SKIN CANCER [None]
  - SKIN ULCER [None]
